FAERS Safety Report 11236538 (Version 5)
Quarter: 2016Q4

REPORT INFORMATION
  Report Type: Report from Study
  Country: JP (occurrence: JP)
  Receive Date: 20150702
  Receipt Date: 20161021
  Transmission Date: 20170206
  Serious: Yes (Life-Threatening, Other)
  Sender: FDA-Public Use
  Company Number: PHHY2012JP094339

PATIENT
  Age: 58 Year
  Sex: Female
  Weight: 59.7 kg

DRUGS (19)
  1. ATORVASTATIN [Concomitant]
     Active Substance: ATORVASTATIN
     Indication: HYPERLIPIDAEMIA
     Dosage: 10 MG, UNK
     Route: 048
  2. SOL-MELCORT [Concomitant]
     Active Substance: METHYLPREDNISOLONE SODIUM SUCCINATE
     Dosage: 500 MG, UNK
     Route: 065
     Dates: start: 20120508, end: 20120516
  3. SOL-MELCORT [Concomitant]
     Active Substance: METHYLPREDNISOLONE SODIUM SUCCINATE
     Dosage: 1000 MG, UNK
     Route: 065
     Dates: start: 20120804, end: 20120806
  4. SOL-MELCORT [Concomitant]
     Active Substance: METHYLPREDNISOLONE SODIUM SUCCINATE
     Dosage: 500 MG, UNK
     Route: 065
     Dates: start: 20120814, end: 20120816
  5. GILENYA [Suspect]
     Active Substance: FINGOLIMOD HYDROCHLORIDE
     Dosage: 0.5 MG, QOD
     Route: 048
     Dates: start: 20121016, end: 20121119
  6. SENNOSIDE [Concomitant]
     Active Substance: SENNOSIDES
     Indication: CONSTIPATION
     Dosage: 24 MG, UNK
     Route: 048
  7. SOL-MELCORT [Concomitant]
     Active Substance: METHYLPREDNISOLONE SODIUM SUCCINATE
     Indication: MULTIPLE SCLEROSIS
     Dosage: 500 MG, UNK
     Route: 065
     Dates: start: 20120227, end: 20120229
  8. SOL-MELCORT [Concomitant]
     Active Substance: METHYLPREDNISOLONE SODIUM SUCCINATE
     Dosage: 500 MG, UNK
     Route: 065
     Dates: start: 20130404, end: 20130406
  9. BAYASPIRIN [Concomitant]
     Active Substance: ASPIRIN
     Indication: PROPHYLAXIS
     Dosage: 100 MG, UNK
     Route: 048
  10. REBAMIPIDE [Concomitant]
     Active Substance: REBAMIPIDE
     Indication: PROPHYLAXIS
     Dosage: 100 MG, UNK
     Route: 048
  11. ANPLAG [Concomitant]
     Active Substance: SARPOGRELATE
     Indication: RETINAL ARTERY OCCLUSION
     Dosage: 300 MG, UNK
     Route: 048
     Dates: start: 20120910
  12. GILENYA [Suspect]
     Active Substance: FINGOLIMOD HYDROCHLORIDE
     Dosage: 0.5 MG, QOD
     Route: 048
     Dates: start: 20121203, end: 20130812
  13. MAGMITT [Concomitant]
     Active Substance: MAGNESIUM OXIDE
     Indication: CONSTIPATION
     Dosage: 1500 MG, UNK
     Route: 048
  14. GILENYA [Suspect]
     Active Substance: FINGOLIMOD HYDROCHLORIDE
     Dosage: 0.5 MG, Q72H
     Route: 048
     Dates: start: 20130813, end: 20140116
  15. SOL-MELCORT [Concomitant]
     Active Substance: METHYLPREDNISOLONE SODIUM SUCCINATE
     Dosage: 500 MG, UNK
     Route: 065
     Dates: start: 20130319, end: 20130321
  16. SOL-MELCORT [Concomitant]
     Active Substance: METHYLPREDNISOLONE SODIUM SUCCINATE
     Dosage: 1000 MG, UNK
     Route: 065
     Dates: start: 20120913, end: 20120915
  17. GILENYA [Suspect]
     Active Substance: FINGOLIMOD HYDROCHLORIDE
     Indication: MULTIPLE SCLEROSIS
     Dosage: 0.5 MG, QD
     Route: 048
     Dates: start: 20121003, end: 20121009
  18. CARNACULIN [Concomitant]
     Active Substance: KALLIDINOGENASE
     Indication: RETINAL ARTERY OCCLUSION
     Dosage: 150 IU, UNK
     Route: 048
     Dates: start: 20120910
  19. UBRETID [Concomitant]
     Active Substance: DISTIGMINE BROMIDE
     Indication: NEUROGENIC BLADDER
     Dosage: 5 MG, UNK
     Route: 048
     Dates: start: 20120807

REACTIONS (4)
  - Lymphocyte count decreased [Recovered/Resolved]
  - Prescribed underdose [Unknown]
  - Lymphocyte count decreased [Recovered/Resolved]
  - Lymphoma [Recovering/Resolving]

NARRATIVE: CASE EVENT DATE: 20121009
